FAERS Safety Report 7284970-2 (Version None)
Quarter: 2011Q1

REPORT INFORMATION
  Report Type: 
  Country: None (occurrence: None)
  Receive Date: 20110204
  Receipt Date: 20110204
  Transmission Date: 20110831
  Serious: Yes (Other)
  Sender: FDA-Public Use
  Company Number: None

PATIENT
  Sex: Female
  Weight: 0.78 kg

DRUGS (1)
  1. CHLORHEXIDINE GLUCONATE [Suspect]

REACTIONS (7)
  - SEPSIS NEONATAL [None]
  - THERMAL BURN [None]
  - SKIN DISORDER [None]
  - WOUND SECRETION [None]
  - DEATH NEONATAL [None]
  - CARDIOPULMONARY FAILURE [None]
  - SKIN HAEMORRHAGE [None]
